FAERS Safety Report 5128283-3 (Version None)
Quarter: 2006Q4

REPORT INFORMATION
  Report Type: 
  Country: None (occurrence: None)
  Receive Date: 20061017
  Receipt Date: 20060728
  Transmission Date: 20070319
  Serious: Yes (Other)
  Sender: FDA-Public Use
  Company Number: 2006AC01406

PATIENT
  Age: 17601 Day
  Sex: Female

DRUGS (4)
  1. SEROQUEL [Suspect]
     Indication: BORDERLINE PERSONALITY DISORDER
     Route: 048
     Dates: start: 20060603
  2. OXAZEPAM [Concomitant]
  3. TEMAZEPAM [Concomitant]
  4. PANTOZOL [Concomitant]
     Dosage: FOR TEN DAYS

REACTIONS (3)
  - FAECES DISCOLOURED [None]
  - GASTROINTESTINAL DISORDER [None]
  - ULCER [None]
